FAERS Safety Report 6027967-2 (Version None)
Quarter: 2008Q4

REPORT INFORMATION
  Report Type: 
  Country: None (occurrence: None)
  Receive Date: 20081230
  Receipt Date: 20081215
  Transmission Date: 20090506
  Serious: Yes (Hospitalization)
  Sender: FDA-Public Use
  Company Number: 100#08#2008-06312

PATIENT
  Age: 35 Year
  Sex: Male

DRUGS (4)
  1. RISPERIDONE [Suspect]
     Indication: DRUG USE FOR UNKNOWN INDICATION
     Dosage: 6 MG
  2. OLANZAPINE [Suspect]
     Indication: DRUG USE FOR UNKNOWN INDICATION
     Dosage: 10 MG, 20 MG
  3. CLOZAPINE [Concomitant]
  4. BIPERIDEN HYDROCHLORIDE TAB [Concomitant]

REACTIONS (7)
  - CONDITION AGGRAVATED [None]
  - DYSTONIA [None]
  - HALLUCINATION [None]
  - JOINT HYPEREXTENSION [None]
  - PSYCHOTIC DISORDER [None]
  - SCHIZOPHRENIA [None]
  - TORTICOLLIS [None]
